FAERS Safety Report 20199170 (Version 1)
Quarter: 2021Q4

REPORT INFORMATION
  Report Type: Spontaneous
  Country: US (occurrence: None)
  Receive Date: 20211216
  Receipt Date: 20211216
  Transmission Date: 20220303
  Serious: No
  Sender: FDA-Public Use
  Company Number: None

PATIENT
  Age: 62 Year
  Sex: Female

DRUGS (1)
  1. BAMLANIVIMAB\ETESEVIMAB [Suspect]
     Active Substance: BAMLANIVIMAB\ETESEVIMAB
     Indication: COVID-19
     Dosage: FREQUENCY : ONCE;?
     Route: 042
     Dates: start: 20211212, end: 20211212

REACTIONS (7)
  - Infusion [None]
  - Dizziness [None]
  - Pruritus [None]
  - Urticaria [None]
  - Nausea [None]
  - Flushing [None]
  - Rash [None]

NARRATIVE: CASE EVENT DATE: 20211212
